FAERS Safety Report 4456716-4 (Version None)
Quarter: 2004Q3

REPORT INFORMATION
  Report Type: 
  Country: None (occurrence: None)
  Receive Date: 20040923
  Receipt Date: 20040917
  Transmission Date: 20050211
  Serious: Yes (Hospitalization)
  Sender: FDA-Public Use
  Company Number: 200417107US

PATIENT
  Age: 48 Year
  Sex: Female

DRUGS (4)
  1. ARAVA [Suspect]
     Indication: RHEUMATOID ARTHRITIS
     Dosage: DOSE: UNK
     Dates: start: 20040301, end: 20040801
  2. REMICADE [Concomitant]
     Dosage: DOSE: UNK
     Dates: start: 20040301
  3. TRAZODONE [Concomitant]
     Dosage: DOSE: UNK
  4. QUESTRAN [Concomitant]
     Dosage: DOSE: UNK
     Route: 048

REACTIONS (5)
  - ALANINE AMINOTRANSFERASE INCREASED [None]
  - ASPARTATE AMINOTRANSFERASE INCREASED [None]
  - BLOOD BILIRUBIN INCREASED [None]
  - JAUNDICE [None]
  - LIVER DISORDER [None]
